FAERS Safety Report 10233322 (Version 1)
Quarter: 2014Q2

REPORT INFORMATION
  Report Type: Spontaneous
  Country: DK (occurrence: DK)
  Receive Date: 20140612
  Receipt Date: 20140612
  Transmission Date: 20141212
  Serious: Yes (Other)
  Sender: FDA-Public Use
  Company Number: DK-WATSON-2014-11990

PATIENT
  Age: 5 Year
  Sex: Male
  Weight: 30 kg

DRUGS (2)
  1. RISPERIDON ACTAVIS [Suspect]
     Indication: AUTISM
     Dosage: 0.75 MG, DAILY
     Route: 048
     Dates: start: 20101201
  2. MELATONIN [Concomitant]
     Indication: SLEEP DISORDER
     Dosage: 3 MG, DAILY
     Route: 065

REACTIONS (3)
  - Headache [Recovered/Resolved]
  - Urticaria [Recovered/Resolved]
  - Constipation [Recovered/Resolved]
